FAERS Safety Report 21683566 (Version 2)
Quarter: 2024Q1

REPORT INFORMATION
  Report Type: Spontaneous
  Country: BR (occurrence: BR)
  Receive Date: 20221205
  Receipt Date: 20240116
  Transmission Date: 20240410
  Serious: Yes (Other)
  Sender: FDA-Public Use
  Company Number: BR-AMERICAN REGENT INC-2022003412

PATIENT
  Sex: Female
  Weight: 69 kg

DRUGS (14)
  1. VENOFER [Suspect]
     Active Substance: IRON SUCROSE
     Indication: Iron deficiency anaemia
     Dosage: 100 MG IN UNSPECIFIED DILUTION, 1 IN 2 D
     Dates: start: 2021, end: 2021
  2. VENOFER [Suspect]
     Active Substance: IRON SUCROSE
     Dosage: 100 MG IN UNSPECIFIED DILUTION, 1 IN 2 D
     Dates: start: 2021, end: 2021
  3. VENOFER [Suspect]
     Active Substance: IRON SUCROSE
     Dosage: 100 MG IN UNSPECIFIED DILUTION, 1 IN 2 D
     Dates: start: 2021, end: 2021
  4. VENOFER [Suspect]
     Active Substance: IRON SUCROSE
     Dosage: 100 MG IN UNSPECIFIED DILUTION, 1 IN 2 D
     Dates: start: 2021, end: 2021
  5. VENOFER [Suspect]
     Active Substance: IRON SUCROSE
     Dosage: 100 MG IN UNSPECIFIED DILUTION, 1 IN 2 D
     Dates: start: 2021, end: 2021
  6. VENOFER [Suspect]
     Active Substance: IRON SUCROSE
     Dosage: 100 MG (ONE AMPOULE), DILUTED IN 200 ML OF SALINE SOLUTION, ON ALTERNATE DAYS
     Dates: start: 20221112, end: 20221112
  7. VENOFER [Suspect]
     Active Substance: IRON SUCROSE
     Dosage: 100 MILLIGRAM DILUTED IN 200 ML SALINE SOLUTION ON ALTERNATE DAYS
     Dates: start: 20221114, end: 20221114
  8. VENOFER [Suspect]
     Active Substance: IRON SUCROSE
     Dosage: 100 MILLIGRAM DILUTED IN 200 ML SALINE SOLUTION ON ALTERNATE DAYS
     Dates: start: 20221116, end: 20221116
  9. ATENOLOL [Concomitant]
     Active Substance: ATENOLOL
     Indication: Arrhythmia
     Dosage: MANY YEARS AGO
     Route: 048
  10. BENICAR HCT [Concomitant]
     Active Substance: HYDROCHLOROTHIAZIDE\OLMESARTAN MEDOXOMIL
     Indication: Hypertension
     Dosage: MANY YEARS AGO
     Route: 048
     Dates: end: 202211
  11. NEBIVOLOL HYDROCHLORIDE [Concomitant]
     Active Substance: NEBIVOLOL HYDROCHLORIDE
     Indication: Arrhythmia
     Dosage: 1 DOSAGE FORM
     Route: 048
  12. OLMESARTAN MEDOXOMIL [Concomitant]
     Active Substance: OLMESARTAN MEDOXOMIL
     Indication: Hypertension
     Dosage: 1 DOSAGE FORM
     Route: 048
  13. CIPROFIBRATE [Suspect]
     Active Substance: CIPROFIBRATE
     Indication: Blood cholesterol increased
     Dosage: 1 DOSAGE FORM
     Route: 048
  14. CIPROFIBRATE [Suspect]
     Active Substance: CIPROFIBRATE
     Indication: Blood triglycerides increased

REACTIONS (10)
  - Vein rupture [Recovered/Resolved]
  - Dysstasia [Not Recovered/Not Resolved]
  - Poor venous access [Unknown]
  - Somnolence [Not Recovered/Not Resolved]
  - Fatigue [Not Recovered/Not Resolved]
  - Asthenia [Unknown]
  - Dizziness [Not Recovered/Not Resolved]
  - Infusion site haematoma [Not Recovered/Not Resolved]
  - Product preparation issue [Unknown]
  - Product availability issue [Unknown]

NARRATIVE: CASE EVENT DATE: 20210101
